FAERS Safety Report 9094115 (Version 1)
Quarter: 2013Q1

REPORT INFORMATION
  Report Type: Spontaneous
  Country: US (occurrence: None)
  Receive Date: 20130122
  Receipt Date: 20130122
  Transmission Date: 20140127
  Serious: Yes (Other)
  Sender: FDA-Public Use
  Company Number: JPI-P-026852

PATIENT
  Age: 53 Year
  Sex: Male
  Weight: 99.79 kg

DRUGS (10)
  1. XYREM  (500 MILLIGRAM/MILLILITERS, SOLUTION)(SODIUM OXYBATE) [Suspect]
     Indication: CATAPLEXY
     Dosage: (1.5 MG, 2 IN 1 D)
     Route: 048
     Dates: start: 20090615
  2. DIVALPROEX SODIUM [Concomitant]
  3. QUETIAPINE FUMARATE [Concomitant]
  4. LACOSAMIDE [Concomitant]
  5. MIRTAZAPINE [Concomitant]
  6. LEVOTHYROXINE SODIUM [Concomitant]
  7. AMPHETAMINE, DEXTROAMPHETAMINE MIXED SALTS [Concomitant]
  8. CLONAZEPAM [Concomitant]
  9. ACETAMINOPHEN, OXYCODONE [Concomitant]
  10. TESTOSTERONE [Concomitant]

REACTIONS (35)
  - Weight decreased [None]
  - Coordination abnormal [None]
  - Muscle spasms [None]
  - Sudden onset of sleep [None]
  - Anxiety [None]
  - Head injury [None]
  - Concussion [None]
  - Loss of consciousness [None]
  - Amnesia [None]
  - Headache [None]
  - Fatigue [None]
  - Asthenia [None]
  - Myalgia [None]
  - Muscle spasms [None]
  - Arthralgia [None]
  - Joint stiffness [None]
  - Joint swelling [None]
  - Neck pain [None]
  - Back pain [None]
  - Gait disturbance [None]
  - Dizziness [None]
  - Hypoaesthesia [None]
  - Tremor [None]
  - Paraesthesia [None]
  - Depression [None]
  - Nervousness [None]
  - Stress [None]
  - Somnolence [None]
  - Euphoric mood [None]
  - Speech disorder [None]
  - Hallucination [None]
  - Insomnia [None]
  - Cognitive disorder [None]
  - Vision blurred [None]
  - Ataxia [None]
